FAERS Safety Report 8517268-2 (Version None)
Quarter: 2012Q3

REPORT INFORMATION
  Report Type: 
  Country: None (occurrence: None)
  Receive Date: 20120718
  Receipt Date: 20120713
  Transmission Date: 20120928
  Serious: Yes (Other)
  Sender: FDA-Public Use
  Company Number: JP-PFIZER INC-2012147890

PATIENT
  Age: 55 Year
  Sex: Female

DRUGS (1)
  1. LYRICA [Suspect]
     Dosage: 150 MG DAILY
     Route: 048

REACTIONS (3)
  - DRUG DOSE OMISSION [None]
  - ROAD TRAFFIC ACCIDENT [None]
  - DIZZINESS [None]
